FAERS Safety Report 9244932 (Version 2)
Quarter: 2013Q2

REPORT INFORMATION
  Report Type: Spontaneous
  Country: US (occurrence: US)
  Receive Date: 20130422
  Receipt Date: 20130509
  Transmission Date: 20140414
  Serious: No
  Sender: FDA-Public Use
  Company Number: US-ROXANE LABORATORIES, INC.-2013-RO-00532RO

PATIENT
  Age: 68 Year
  Sex: Male

DRUGS (6)
  1. FLECAINIDE [Suspect]
     Indication: ATRIAL FIBRILLATION
     Dosage: 200 MG
     Route: 048
  2. WARFARIN [Concomitant]
  3. LIPITOR [Concomitant]
  4. METFORMIN [Concomitant]
  5. IRBESARTAN [Concomitant]
  6. ASPIRIN [Concomitant]

REACTIONS (2)
  - Atrial fibrillation [Unknown]
  - Product quality issue [Unknown]
